FAERS Safety Report 6287472-5 (Version None)
Quarter: 2009Q3

REPORT INFORMATION
  Report Type: 
  Country: None (occurrence: None)
  Receive Date: 20090728
  Receipt Date: 20090717
  Transmission Date: 20100115
  Serious: Yes (Hospitalization)
  Sender: FDA-Public Use
  Company Number: GB-MERCK-0907GBR00015

PATIENT
  Age: 40 Year
  Sex: Female

DRUGS (9)
  1. SINGULAIR [Suspect]
     Indication: ASTHMA
     Route: 048
     Dates: start: 20090101, end: 20090601
  2. SINGULAIR [Suspect]
     Route: 048
     Dates: start: 20090601
  3. PREDNISOLONE [Concomitant]
     Indication: ASTHMA
     Route: 065
  4. FLUTICASONE PROPIONATE AND SALMETEROL XINAFOATE [Concomitant]
     Indication: ASTHMA
  5. ALBUTEROL [Concomitant]
     Indication: ASTHMA
     Route: 065
  6. CETIRIZINE HYDROCHLORIDE [Concomitant]
     Route: 065
  7. BUPIVACAINE HYDROCHLORIDE [Concomitant]
     Indication: ASTHMA
     Route: 065
  8. THEOPHYLLINE [Concomitant]
     Indication: ASTHMA
     Route: 065
  9. TRIAMCINOLONE ACETONIDE [Concomitant]
     Route: 030

REACTIONS (2)
  - ASTHMA [None]
  - OVERDOSE [None]
